FAERS Safety Report 5900300-X (Version None)
Quarter: 2008Q3

REPORT INFORMATION
  Report Type: 
  Country: None (occurrence: None)
  Receive Date: 20080926
  Receipt Date: 20080922
  Transmission Date: 20090109
  Serious: Yes (Hospitalization, Other)
  Sender: FDA-Public Use
  Company Number: PHHY2008AT17980

PATIENT
  Age: 55 Year
  Sex: Female

DRUGS (1)
  1. GLEEVEC [Suspect]
     Dosage: 400 MG
     Route: 048
     Dates: start: 20050830, end: 20080813

REACTIONS (1)
  - DEAFNESS [None]
